FAERS Safety Report 8175888-1 (Version None)
Quarter: 2012Q1

REPORT INFORMATION
  Report Type: 
  Country: None (occurrence: None)
  Receive Date: 20120301
  Receipt Date: 20120222
  Transmission Date: 20120608
  Serious: Yes (Other)
  Sender: FDA-Public Use
  Company Number: US-SANOFI-AVENTIS-2012SA012140

PATIENT
  Age: 54 Year
  Sex: Female

DRUGS (5)
  1. LANTUS [Suspect]
     Dosage: DOSE:20 UNIT(S)
     Route: 058
     Dates: start: 20060101
  2. SOLOSTAR [Suspect]
     Dosage: DOSE:20 UNIT(S)
     Route: 058
     Dates: start: 20060101
  3. LISINOPRIL [Concomitant]
  4. SEVELAMER [Concomitant]
  5. NITROGLYCERIN [Concomitant]

REACTIONS (1)
  - RENAL FAILURE [None]
